FAERS Safety Report 6638900-4 (Version None)
Quarter: 2010Q1

REPORT INFORMATION
  Report Type: 
  Country: None (occurrence: None)
  Receive Date: 20100317
  Receipt Date: 20100303
  Transmission Date: 20100710
  Serious: Yes (Other)
  Sender: FDA-Public Use
  Company Number: PHHY2010US13826

PATIENT
  Sex: Female

DRUGS (26)
  1. RECLAST [Suspect]
     Dosage: UNK
     Dates: start: 20091012
  2. BONIVA [Suspect]
  3. PROZAC [Concomitant]
     Dosage: 20 MG, 2 TABLETS, TWICE DAILY
  4. ALBUTEROL [Concomitant]
     Dosage: 1 PUFF EVERY 4 HOURS
  5. AMCINONIDE [Concomitant]
  6. CYCLOCORT [Concomitant]
  7. BUPROPION HCL [Concomitant]
     Indication: DEPRESSION
     Dosage: 75 MG,2 TABLETS THRICE DAILY
  8. CALCIUM CARBONATE [Concomitant]
  9. CYCLOBENZAPRINE [Concomitant]
     Dosage: 10 MG, UNK
  10. CARDURA [Concomitant]
     Dosage: 2 MG TABLET, HALF DAILY
  11. ESTROGEN NOS [Concomitant]
  12. DILTIAZEM HCL [Concomitant]
     Dosage: 360 MG, DAILY
  13. ANTIHISTAMINES [Concomitant]
  14. ALLEGRA [Concomitant]
     Dosage: 180 MG, ONCE, DAILY
  15. FUROSEMIDE [Concomitant]
     Dosage: 40 MG, ONCE DAILY
  16. MIRALAX [Concomitant]
     Indication: INCONTINENCE
  17. PROPYLENE GLYCOL [Concomitant]
     Dosage: 17 G, BID
  18. ACETAMINOPHEN [Concomitant]
  19. VITAMINS [Concomitant]
  20. FISH OIL [Concomitant]
  21. NASONEX [Concomitant]
  22. MULTIPLE VITAMIN [Concomitant]
  23. MULTI-VITAMINS [Concomitant]
  24. VITAMINE C [Concomitant]
  25. IRON SUPPLEMENTS [Concomitant]
     Indication: ANAEMIA
  26. SYNTHROID [Concomitant]

REACTIONS (12)
  - ARTHRITIS [None]
  - DEPRESSION [None]
  - EMOTIONAL DISTRESS [None]
  - FEELING ABNORMAL [None]
  - FEELING HOT [None]
  - HYPOCHONDRIASIS [None]
  - INSOMNIA [None]
  - MEMORY IMPAIRMENT [None]
  - NERVOUSNESS [None]
  - NIGHT SWEATS [None]
  - PYREXIA [None]
  - WEIGHT DECREASED [None]
